FAERS Safety Report 7380641-2 (Version None)
Quarter: 2011Q1

REPORT INFORMATION
  Report Type: 
  Country: None (occurrence: None)
  Receive Date: 20110329
  Receipt Date: 20110321
  Transmission Date: 20110831
  Serious: Yes (Hospitalization)
  Sender: FDA-Public Use
  Company Number: US-ASTRAZENECA-2011SE15930

PATIENT
  Age: 44 Year
  Sex: Female
  Weight: 81.6 kg

DRUGS (10)
  1. METHADONE [Concomitant]
     Indication: BACK DISORDER
  2. HYDROCODONE BITARTRATE [Concomitant]
     Indication: BACK DISORDER
  3. CYMBALTA [Concomitant]
     Indication: INSOMNIA
  4. MIRTAZAPINE [Concomitant]
     Indication: DEPRESSION
  5. SOMA [Concomitant]
  6. NEXIUM [Concomitant]
     Indication: DYSPEPSIA
  7. XANAX [Concomitant]
     Indication: ANXIETY
  8. ZOVIRAX [Concomitant]
     Indication: HERPES ZOSTER
  9. SEROQUEL [Suspect]
     Route: 048
  10. BUSPAR [Concomitant]
     Indication: DEPRESSION

REACTIONS (1)
  - SHOULDER OPERATION [None]
